APPROVED DRUG PRODUCT: DIMENHYDRINATE
Active Ingredient: DIMENHYDRINATE
Strength: 50MG
Dosage Form/Route: TABLET;ORAL
Application: A085985 | Product #001
Applicant: NEXGEN PHARMA INC
Approved: Approved Prior to Jan 1, 1982 | RLD: No | RS: No | Type: DISCN